FAERS Safety Report 8422917-3 (Version None)
Quarter: 2012Q2

REPORT INFORMATION
  Report Type: 
  Country: None (occurrence: None)
  Receive Date: 20120608
  Receipt Date: 20120531
  Transmission Date: 20120825
  Serious: Yes (Hospitalization, Congenital Anomaly)
  Sender: FDA-Public Use
  Company Number: US-GLAXOSMITHKLINE-A0980480A

PATIENT
  Sex: Male

DRUGS (1)
  1. PAXIL [Suspect]
     Indication: POSTPARTUM DEPRESSION
     Dosage: 20MG PER DAY
     Route: 064
     Dates: start: 19930330

REACTIONS (6)
  - CEREBRAL PALSY [None]
  - MULTIPLE CARDIAC DEFECTS [None]
  - VENTRICULAR SEPTAL DEFECT [None]
  - TRANSPOSITION OF THE GREAT VESSELS [None]
  - DOUBLE OUTLET RIGHT VENTRICLE [None]
  - FOETAL EXPOSURE DURING PREGNANCY [None]
